FAERS Safety Report 9762819 (Version 3)
Quarter: 2015Q3

REPORT INFORMATION
  Report Type: Spontaneous
  Country: US (occurrence: US)
  Receive Date: 20131216
  Receipt Date: 20150817
  Transmission Date: 20151125
  Serious: No
  Sender: FDA-Public Use
  Company Number: US-GILEAD-2013-0090060

PATIENT
  Age: 87 Year
  Sex: Female

DRUGS (17)
  1. LETAIRIS [Suspect]
     Active Substance: AMBRISENTAN
     Indication: SCLERODERMA
  2. FLONASE [Concomitant]
     Active Substance: FLUTICASONE PROPIONATE
  3. LETAIRIS [Suspect]
     Active Substance: AMBRISENTAN
     Indication: PULMONARY HYPERTENSION
     Dosage: 10 MG, QD
     Route: 065
     Dates: start: 20110214
  4. VENLAFAXINE [Concomitant]
     Active Substance: VENLAFAXINE HYDROCHLORIDE
  5. HYDROCHLOROTHIAZIDE. [Concomitant]
     Active Substance: HYDROCHLOROTHIAZIDE
  6. FERROUS SULFATE [Concomitant]
     Active Substance: FERROUS SULFATE\FERROUS SULFATE, DRIED
  7. POTASSIUM CHLORIDE. [Concomitant]
     Active Substance: POTASSIUM CHLORIDE
  8. FISH OIL [Concomitant]
     Active Substance: FISH OIL
  9. VITAMIN B COMPLEX [Concomitant]
     Active Substance: CYANOCOBALAMIN\DEXPANTHENOL\NIACINAMIDE\PYRIDOXINE HYDROCHLORIDE\RIBOFLAVIN 5^-PHOSPHATE SODIUM\THIAMINE HYDROCHLORIDE\VITAMIN B COMPLEX
  10. TRAMADOL. [Concomitant]
     Active Substance: TRAMADOL
  11. LOSARTAN. [Concomitant]
     Active Substance: LOSARTAN
  12. OMEPRAZOLE. [Concomitant]
     Active Substance: OMEPRAZOLE
  13. MULTIVITAMIN                       /07504101/ [Concomitant]
     Active Substance: VITAMINS
  14. VITAMIN D 2000 [Concomitant]
  15. ASPIRIN. [Concomitant]
     Active Substance: ASPIRIN
  16. FUROSEMIDE. [Concomitant]
     Active Substance: FUROSEMIDE
  17. PROBIOTICS NOS [Concomitant]
     Active Substance: PROBIOTICS NOS

REACTIONS (2)
  - Gastric disorder [Unknown]
  - Tympanic membrane perforation [Unknown]
